FAERS Safety Report 16626975 (Version 1)
Quarter: 2019Q3

REPORT INFORMATION
  Report Type: Spontaneous
  Country: US (occurrence: US)
  Receive Date: 20190724
  Receipt Date: 20190724
  Transmission Date: 20191004
  Serious: Yes (Other)
  Sender: FDA-Public Use
  Company Number: US-SA-2019SA197456

PATIENT
  Sex: Female

DRUGS (3)
  1. LANTUS SOLOSTAR [Suspect]
     Active Substance: INSULIN GLARGINE
     Dosage: 23 U, HS
     Route: 065
  2. LANTUS SOLOSTAR [Suspect]
     Active Substance: INSULIN GLARGINE
     Dosage: 28 U, HS
     Route: 065
  3. NOVOLOG [Suspect]
     Active Substance: INSULIN ASPART
     Route: 065

REACTIONS (3)
  - Product storage error [Unknown]
  - Blood glucose decreased [Unknown]
  - Diabetes mellitus inadequate control [Unknown]
